FAERS Safety Report 16341467 (Version 1)
Quarter: 2019Q2

REPORT INFORMATION
  Report Type: Spontaneous
  Country: TW (occurrence: TW)
  Receive Date: 20190522
  Receipt Date: 20190522
  Transmission Date: 20190711
  Serious: Yes (Hospitalization)
  Sender: FDA-Public Use
  Company Number: TW-SCIEGEN PHARMACEUTICALS INC-2019SCILIT00170

PATIENT
  Age: 21 Year
  Sex: Female

DRUGS (3)
  1. DROSPIRENONE [Suspect]
     Active Substance: DROSPIRENONE
     Indication: POLYCYSTIC OVARIES
  2. PALIPERIDONE. [Interacting]
     Active Substance: PALIPERIDONE
     Indication: PSYCHOTIC SYMPTOM
  3. METFORMIN HYDROCHLORIDETABLETS [Suspect]
     Active Substance: METFORMIN HYDROCHLORIDE
     Indication: POLYCYSTIC OVARIES

REACTIONS (3)
  - Product use in unapproved indication [Unknown]
  - Insomnia [Unknown]
  - Psychotic disorder [Recovered/Resolved]
